FAERS Safety Report 19096532 (Version 1)
Quarter: 2021Q2

REPORT INFORMATION
  Report Type: Spontaneous
  Country: US (occurrence: US)
  Receive Date: 20210406
  Receipt Date: 20210406
  Transmission Date: 20210717
  Serious: Yes (Hospitalization)
  Sender: FDA-Public Use
  Company Number: US-MYLANLABS-2021M1019465

PATIENT
  Age: 27 Year
  Sex: Female

DRUGS (10)
  1. TIMOLOL. [Suspect]
     Active Substance: TIMOLOL
     Indication: KERATOCONUS
     Dosage: IN RIGHT EYE
     Route: 065
  2. SODIUM CHLORIDE. [Suspect]
     Active Substance: SODIUM CHLORIDE
     Indication: KERATOCONUS
     Dosage: IN RIGHT EYE
     Route: 061
  3. HOMATROPINE [Suspect]
     Active Substance: HOMATROPINE HYDROBROMIDE
     Indication: KERATOCONUS
     Dosage: IN LEFT EYE
     Route: 061
  4. ALCAFTADINE [Suspect]
     Active Substance: ALCAFTADINE
     Indication: KERATOCONUS
     Dosage: IN LEFT EYE
     Route: 065
  5. DORZOLAMIDE [Suspect]
     Active Substance: DORZOLAMIDE
     Indication: KERATOCONUS
     Dosage: IN LEFT EYE
     Route: 065
  6. BRIMONIDINE [Suspect]
     Active Substance: BRIMONIDINE TARTRATE
     Indication: KERATOCONUS
     Dosage: IN RIGHT EYE
     Route: 065
  7. SODIUM CHLORIDE. [Suspect]
     Active Substance: SODIUM CHLORIDE
     Dosage: IN LEFT EYE
     Route: 061
  8. PREDNISOLONE. [Suspect]
     Active Substance: PREDNISOLONE
     Indication: KERATOCONUS
     Dosage: IN RIGHT EYE
     Route: 065
  9. TIMOLOL. [Suspect]
     Active Substance: TIMOLOL
     Dosage: IN LEFT EYE
     Route: 065
  10. HOMATROPINE [Suspect]
     Active Substance: HOMATROPINE HYDROBROMIDE
     Indication: KERATOCONUS
     Dosage: IN RIGHT EYE
     Route: 065

REACTIONS (1)
  - Drug ineffective [Unknown]
